FAERS Safety Report 6471950-X (Version None)
Quarter: 2009Q4

REPORT INFORMATION
  Report Type: 
  Country: None (occurrence: None)
  Receive Date: 20091203
  Receipt Date: 20080409
  Transmission Date: 20100525
  Serious: Yes (Other)
  Sender: FDA-Public Use
  Company Number: US-ELI_LILLY_AND_COMPANY-US200804002569

PATIENT
  Sex: Female
  Weight: 99.773 kg

DRUGS (12)
  1. CYMBALTA [Suspect]
     Indication: NEURALGIA
     Dosage: 90 MG, DAILY (1/D)
     Route: 048
     Dates: start: 20051208
  2. GABITRIL [Concomitant]
     Indication: SLEEP DISORDER
     Dosage: 2 MG, EACH EVENING
     Route: 048
     Dates: start: 20060816, end: 20060819
  3. GABITRIL [Concomitant]
     Dosage: 4 MG, EACH EVENING
     Route: 048
     Dates: start: 20060820, end: 20060831
  4. GABITRIL [Concomitant]
     Dosage: 6 MG, EACH EVENING
     Route: 048
     Dates: start: 20060901, end: 20060912
  5. GABITRIL [Concomitant]
     Dosage: 12 MG, EACH EVENING
     Route: 048
     Dates: start: 20060913, end: 20060918
  6. GABITRIL [Concomitant]
     Dosage: 8 MG, EACH EVENING
     Route: 048
     Dates: start: 20060919, end: 20061204
  7. LIPITOR [Concomitant]
     Dates: start: 20040101
  8. KLONOPIN [Concomitant]
     Dates: start: 19980101
  9. DILTIAZEM [Concomitant]
     Dates: start: 20030101
  10. AMBIEN [Concomitant]
     Dates: end: 20061201
  11. NEURONTIN [Concomitant]
     Dates: start: 20060801, end: 20070115
  12. ZOLOFT [Concomitant]
     Indication: POST-TRAUMATIC STRESS DISORDER
     Dosage: 200 MG, DAILY (1/D)
     Route: 048
     Dates: start: 19990101

REACTIONS (6)
  - ANXIETY [None]
  - ASTHMA [None]
  - COUGH [None]
  - PANIC ATTACK [None]
  - PNEUMONIA [None]
  - TREMOR [None]
